FAERS Safety Report 8235534-5 (Version None)
Quarter: 2012Q1

REPORT INFORMATION
  Report Type: 
  Country: None (occurrence: None)
  Receive Date: 20120313
  Receipt Date: 20120313
  Transmission Date: 20120608
  Serious: Yes (Hospitalization)
  Sender: FDA-Public Use
  Company Number: JPI-P-020365

PATIENT
  Age: 77 Year
  Sex: Female

DRUGS (2)
  1. XYREM [Suspect]
     Indication: NARCOLEPSY
     Dosage: 4.5 GM (2.25 GM,2 IN 1 D),ORAL ; ORAL ; 5 GM (5 GM,1 IN 1 D),ORAL
     Route: 048
     Dates: start: 20070921
  2. XYREM [Suspect]
     Indication: NARCOLEPSY
     Dosage: 4.5 GM (2.25 GM,2 IN 1 D),ORAL ; ORAL ; 5 GM (5 GM,1 IN 1 D),ORAL
     Route: 048
     Dates: start: 20101108

REACTIONS (10)
  - PNEUMONIA [None]
  - PROTHROMBIN TIME PROLONGED [None]
  - COUGH [None]
  - INITIAL INSOMNIA [None]
  - DYSPNOEA [None]
  - ATRIAL FIBRILLATION [None]
  - LARYNGITIS [None]
  - BRONCHITIS [None]
  - COMPULSIVE LIP BITING [None]
  - WEIGHT DECREASED [None]
